FAERS Safety Report 6488255-3 (Version None)
Quarter: 2009Q4

REPORT INFORMATION
  Report Type: 
  Country: None (occurrence: None)
  Receive Date: 20091210
  Receipt Date: 20091126
  Transmission Date: 20100525
  Serious: Yes (Other)
  Sender: FDA-Public Use
  Company Number: GB-MYLANLABS-2009S1020482

PATIENT
  Age: 71 Year
  Sex: Male

DRUGS (2)
  1. VERAPAMIL [Suspect]
     Indication: DRUG USE FOR UNKNOWN INDICATION
     Dates: start: 20001201, end: 20010901
  2. VERAPAMIL [Suspect]
     Dates: start: 20011119

REACTIONS (1)
  - LYMPHOMATOID PAPULOSIS [None]
